FAERS Safety Report 25952111 (Version 2)
Quarter: 2025Q4

REPORT INFORMATION
  Report Type: Report from Study
  Country: CA (occurrence: CA)
  Receive Date: 20251023
  Receipt Date: 20251028
  Transmission Date: 20260117
  Serious: Yes (Hospitalization)
  Sender: NOVARTIS
  Company Number: CA-002147023-NVSC2025CA163599

PATIENT
  Age: 78 Year
  Sex: Female

DRUGS (2)
  1. LEQVIO [Suspect]
     Active Substance: INCLISIRAN SODIUM
     Indication: Arteriosclerosis
     Dosage: 284 MG, OTHER, BASELINE (INITIAL)- 3 MONTHS THEN EVERY 6 MONTHS THEREAFTER
     Route: 058
     Dates: start: 20240710
  2. LEQVIO [Suspect]
     Active Substance: INCLISIRAN SODIUM
     Indication: Type IIa hyperlipidaemia

REACTIONS (5)
  - Mobility decreased [Unknown]
  - Myocardial infarction [Unknown]
  - Sinusitis [Unknown]
  - Malaise [Unknown]
  - Stress [Unknown]
